FAERS Safety Report 10172970 (Version 2)
Quarter: 2014Q2

REPORT INFORMATION
  Report Type: Spontaneous
  Country: US (occurrence: None)
  Receive Date: 20140513
  Receipt Date: 20140521
  Transmission Date: 20141212
  Serious: Yes (Death, Life-Threatening, Hospitalization, Other)
  Sender: FDA-Public Use
  Company Number: ADR-2014-00801

PATIENT
  Age: 56 Year
  Sex: Female

DRUGS (3)
  1. BACLOFEN INTRATHECAL [Suspect]
     Indication: POST LAMINECTOMY SYNDROME
  2. HYDROMORPHONE [Suspect]
  3. BUPIVACAINE [Concomitant]

REACTIONS (2)
  - Death [None]
  - Respiratory failure [None]
